FAERS Safety Report 20597072 (Version 1)
Quarter: 2022Q1

REPORT INFORMATION
  Report Type: Spontaneous
  Country: US (occurrence: None)
  Receive Date: 20220315
  Receipt Date: 20220315
  Transmission Date: 20220423
  Serious: No
  Sender: FDA-Public Use
  Company Number: US-ROCHE-2762405

PATIENT
  Age: 24 Year

DRUGS (8)
  1. XOLAIR [Suspect]
     Active Substance: OMALIZUMAB
     Indication: Product used for unknown indication
     Route: 058
  2. CYCLOSPORINE [Concomitant]
     Active Substance: CYCLOSPORINE
     Dosage: 250 MG/DAY
  3. TACROLIMUS [Concomitant]
     Active Substance: TACROLIMUS
  4. TACROLIMUS [Concomitant]
     Active Substance: TACROLIMUS
  5. DAPSONE [Concomitant]
     Active Substance: DAPSONE
  6. MONTELUKAST [Concomitant]
     Active Substance: MONTELUKAST SODIUM
  7. PEPCID [Concomitant]
     Active Substance: FAMOTIDINE
  8. PREDNISONE [Concomitant]
     Active Substance: PREDNISONE

REACTIONS (2)
  - Urticaria [Not Recovered/Not Resolved]
  - Drug ineffective [Unknown]
